FAERS Safety Report 8358092-3 (Version None)
Quarter: 2012Q2

REPORT INFORMATION
  Report Type: 
  Country: None (occurrence: None)
  Receive Date: 20120514
  Receipt Date: 20120509
  Transmission Date: 20120825
  Serious: Yes (Hospitalization)
  Sender: FDA-Public Use
  Company Number: BE-ROCHE-1061968

PATIENT
  Sex: Female
  Weight: 41 kg

DRUGS (13)
  1. RALOXIFENE [Concomitant]
     Indication: OSTEOPOROSIS
     Route: 048
  2. FERROUS SULFATE TAB [Concomitant]
     Indication: ANAEMIA
     Route: 048
  3. NEORECORMON [Concomitant]
     Route: 058
     Dates: start: 20120319
  4. NEXIUM [Concomitant]
     Indication: GASTROOESOPHAGEAL REFLUX DISEASE
     Route: 048
  5. ASPIRIN [Concomitant]
     Indication: ANGINA PECTORIS
     Route: 048
  6. AMLODIPINE BESYLATE [Concomitant]
     Indication: ANGINA PECTORIS
     Route: 048
  7. BETAMETHASONE [Concomitant]
     Route: 061
     Dates: start: 20120206
  8. COPEGUS [Suspect]
     Indication: HEPATITIS C
     Route: 048
     Dates: start: 20120123
  9. VALSARTAN [Concomitant]
     Indication: HYPERTENSION
     Route: 048
  10. NITROGLYCERIN [Concomitant]
     Indication: ANGINA PECTORIS
  11. PEGASYS [Suspect]
     Indication: HEPATITIS C
     Route: 058
     Dates: start: 20120123
  12. TMC435 (NS3/4A PROTEASE INHIBITOR) [Suspect]
     Indication: HEPATITIS C
     Dosage: LAST DOSE PRIOR TO SAE ON 15/APR/2012
     Route: 048
     Dates: start: 20120123
  13. VITAMIN D [Concomitant]
     Indication: OSTEOPOROSIS
     Dosage: AMPOULE
     Route: 048

REACTIONS (2)
  - MALNUTRITION [None]
  - GENERAL PHYSICAL HEALTH DETERIORATION [None]
